FAERS Safety Report 24549473 (Version 1)
Quarter: 2024Q4

REPORT INFORMATION
  Report Type: Spontaneous
  Country: GB (occurrence: GB)
  Receive Date: 20241025
  Receipt Date: 20241025
  Transmission Date: 20250115
  Serious: Yes (Hospitalization, Other)
  Sender: TEVA
  Company Number: None

PATIENT
  Age: 74 Year
  Sex: Female

DRUGS (17)
  1. WARFARIN [Suspect]
     Active Substance: WARFARIN
     Route: 065
  2. ALOGLIPTIN [Concomitant]
     Active Substance: ALOGLIPTIN
  3. DALTEPARIN [Suspect]
     Active Substance: DALTEPARIN
     Route: 065
     Dates: start: 20241001
  4. BECLOMETHASONE\FORMOTEROL [Concomitant]
     Active Substance: BECLOMETHASONE\FORMOTEROL
  5. BISOPROLOL [Concomitant]
     Active Substance: BISOPROLOL\BISOPROLOL FUMARATE
  6. ATORVASTATIN [Concomitant]
     Active Substance: ATORVASTATIN
  7. COCODAMOL [Concomitant]
     Active Substance: ACETAMINOPHEN\CODEINE PHOSPHATE
  8. CITALOPRAM [Concomitant]
     Active Substance: CITALOPRAM
  9. AMOXICILLIN\CLAVULANIC ACID [Concomitant]
     Active Substance: AMOXICILLIN\CLAVULANIC ACID
  10. POLYETHYLENE GLYCOL 3350\POTASSIUM CHLORIDE\SODIUM BICARBONATE\SODIUM [Concomitant]
     Active Substance: POLYETHYLENE GLYCOL 3350\POTASSIUM CHLORIDE\SODIUM BICARBONATE\SODIUM CHLORIDE
  11. BETAHISTINE [Concomitant]
     Active Substance: BETAHISTINE
  12. AMLODIPINE [Concomitant]
     Active Substance: AMLODIPINE BESYLATE
  13. GABAPENTIN [Concomitant]
     Active Substance: GABAPENTIN
  14. FOLIC ACID [Concomitant]
     Active Substance: FOLIC ACID
  15. GLICLAZIDE [Concomitant]
     Active Substance: GLICLAZIDE
  16. ALBUTEROL [Concomitant]
     Active Substance: ALBUTEROL
  17. RAMIPRIL [Concomitant]
     Active Substance: RAMIPRIL

REACTIONS (1)
  - Intra-abdominal haematoma [Not Recovered/Not Resolved]

NARRATIVE: CASE EVENT DATE: 20241015
